FAERS Safety Report 8161667-8 (Version None)
Quarter: 2012Q1

REPORT INFORMATION
  Report Type: 
  Country: None (occurrence: None)
  Receive Date: 20120224
  Receipt Date: 20120215
  Transmission Date: 20120608
  Serious: Yes (Hospitalization)
  Sender: FDA-Public Use
  Company Number: US-BAYER-2012-016729

PATIENT
  Age: 44 Year
  Sex: Female

DRUGS (12)
  1. LISINOPRIL [Concomitant]
     Indication: HYPERTENSION
     Route: 048
  2. YAZ [Suspect]
     Indication: MENORRHAGIA
     Dosage: UNK
     Dates: start: 20110501, end: 20111001
  3. LANTUS [Concomitant]
     Indication: DIABETES MELLITUS
     Dosage: 10 UNITS/ AT 8 PM
     Route: 058
  4. VALIUM [Concomitant]
     Indication: ANXIETY
     Dosage: 10 MG, BID
     Route: 048
  5. METFORMIN HCL [Concomitant]
     Indication: DIABETES MELLITUS
     Dosage: 500 MG, BID
     Route: 048
  6. AMBIEN [Concomitant]
     Indication: INSOMNIA
     Dosage: 10 MG, HS
     Route: 048
  7. NOVOLOG [Concomitant]
     Indication: DIABETES MELLITUS
     Dosage: 4 UNITS/ AT EACH MEAL
     Route: 058
  8. ASPIRIN [Concomitant]
     Indication: ANTICOAGULANT THERAPY
     Dosage: 81 MG IN AM, UNK
     Route: 048
  9. DROSPIRENONE AND ETHINYL ESTRADIOL [Suspect]
     Indication: MENORRHAGIA
     Dosage: UNK
     Dates: start: 20110501, end: 20111001
  10. SYMBICORT [Concomitant]
     Indication: ASTHMA
     Dosage: 1 PUFF/ IN AM
     Route: 055
  11. TOPAMAX [Concomitant]
     Indication: BIPOLAR DISORDER
     Dosage: 50 MG, 2XHS
     Route: 048
  12. NEURONTIN [Concomitant]
     Indication: DIABETIC NEUROPATHY
     Dosage: 300 MG, 3XTID
     Route: 048

REACTIONS (1)
  - DEEP VEIN THROMBOSIS [None]
